FAERS Safety Report 6963919-3 (Version None)
Quarter: 2010Q3

REPORT INFORMATION
  Report Type: 
  Country: None (occurrence: None)
  Receive Date: 20100831
  Receipt Date: 20100816
  Transmission Date: 20110219
  Serious: Yes (Life-Threatening, Hospitalization)
  Sender: FDA-Public Use
  Company Number: 1000015964

PATIENT
  Age: 83 Year
  Sex: Female
  Weight: 45 kg

DRUGS (11)
  1. ESCITALOPRAM [Suspect]
     Indication: ANXIETY
     Dosage: 10 MG (10 MG, 1 IN 1 D), ORAL
     Route: 048
     Dates: start: 20081101, end: 20100403
  2. ESCITALOPRAM [Suspect]
     Indication: DEPRESSION
     Dosage: 10 MG (10 MG, 1 IN 1 D), ORAL
     Route: 048
     Dates: start: 20081101, end: 20100403
  3. AZILECT [Suspect]
     Indication: PARKINSON'S DISEASE
     Dosage: 1 MG (1 MG, 1 IN 1 D), ORAL
     Route: 048
     Dates: start: 20100101, end: 20100401
  4. ULTRACET [Suspect]
     Indication: OSTEOARTHRITIS
     Dosage: 300 MG (75 MG, 4 IN 1 D), ORAL
     Route: 048
     Dates: start: 20100101, end: 20100403
  5. DURAGESIC-100 [Suspect]
     Indication: OSTEOARTHRITIS
     Dosage: 4.1667 MCG (12.5 MCG, 1 IN 3 D), OTHER
     Route: 050
     Dates: end: 20100402
  6. STALEVO 100 [Suspect]
     Indication: PARKINSON'S DISEASE
     Dosage: 500 MG (100 MG, 5 IN 1 D), ORAL
     Route: 048
     Dates: start: 20100101, end: 20100403
  7. CELEBREX [Concomitant]
  8. IMOVANE (TABLETS) [Concomitant]
  9. SINEMET [Concomitant]
  10. CALCIFEROL (TABLETS) [Concomitant]
  11. OCUVITE LUTEIN [Concomitant]

REACTIONS (9)
  - DYSKINESIA [None]
  - HYPERHIDROSIS [None]
  - HYPERKALAEMIA [None]
  - HYPERTENSION [None]
  - PSYCHOTIC DISORDER [None]
  - PYREXIA [None]
  - RENAL FAILURE [None]
  - RHABDOMYOLYSIS [None]
  - TACHYCARDIA [None]
